FAERS Safety Report 6833355-9 (Version None)
Quarter: 2010Q3

REPORT INFORMATION
  Report Type: 
  Country: None (occurrence: None)
  Receive Date: 20100712
  Receipt Date: 20070320
  Transmission Date: 20110219
  Serious: No
  Sender: FDA-Public Use
  Company Number: US-PFIZER INC-2007022743

PATIENT
  Sex: Female
  Weight: 82.55 kg

DRUGS (2)
  1. CHANTIX [Suspect]
     Indication: SMOKING CESSATION THERAPY
     Dates: start: 20070312
  2. AVANDAMET [Concomitant]
     Indication: DIABETES MELLITUS

REACTIONS (2)
  - IRRITABILITY [None]
  - WITHDRAWAL SYNDROME [None]
